FAERS Safety Report 7959444-3 (Version None)
Quarter: 2011Q4

REPORT INFORMATION
  Report Type: 
  Country: None (occurrence: None)
  Receive Date: 20111206
  Receipt Date: 20111202
  Transmission Date: 20120403
  Serious: No
  Sender: FDA-Public Use
  Company Number: US-PFIZER INC-2011294755

PATIENT
  Sex: Male

DRUGS (3)
  1. LISINOPRIL [Suspect]
     Indication: HYPERTENSION
     Dosage: UNK
  2. LYRICA [Suspect]
     Indication: NECK PAIN
     Dosage: 75 MG, 2X/DAY
     Route: 048
     Dates: start: 20111201
  3. PERCOCET [Concomitant]
     Dosage: UNK

REACTIONS (1)
  - PARAESTHESIA [None]
